FAERS Safety Report 7443030-8 (Version None)
Quarter: 2011Q2

REPORT INFORMATION
  Report Type: 
  Country: None (occurrence: None)
  Receive Date: 20110428
  Receipt Date: 20110405
  Transmission Date: 20111010
  Serious: No
  Sender: FDA-Public Use
  Company Number: US-B.I. PHARMACEUTICALS,INC./RIDGEFIELD-2011-BP-10076BP

PATIENT
  Sex: Female

DRUGS (9)
  1. ABILIFY [Concomitant]
     Route: 048
  2. SOMA [Concomitant]
     Indication: MUSCLE SPASMS
     Route: 048
  3. SPIRIVA [Suspect]
     Indication: CHRONIC OBSTRUCTIVE PULMONARY DISEASE
     Dosage: 18 MCG
     Route: 055
  4. NUVIGIL [Concomitant]
     Indication: NARCOLEPSY
     Route: 048
  5. METHADONE [Concomitant]
     Indication: PAIN
     Route: 048
  6. SPIRIVA [Suspect]
     Dosage: 18 MCG
     Route: 048
     Dates: start: 20110405, end: 20110405
  7. OXYCODONE [Concomitant]
     Indication: PAIN
     Route: 048
  8. PRISTIQ [Concomitant]
     Route: 048
  9. XANAX [Concomitant]
     Indication: PANIC ATTACK
     Route: 048

REACTIONS (2)
  - INCORRECT ROUTE OF DRUG ADMINISTRATION [None]
  - OEDEMA PERIPHERAL [None]
